FAERS Safety Report 21742541 (Version 1)
Quarter: 2022Q4

REPORT INFORMATION
  Report Type: Report from Study
  Country: US (occurrence: US)
  Receive Date: 20221216
  Receipt Date: 20221216
  Transmission Date: 20230113
  Serious: No
  Sender: FDA-Public Use
  Company Number: US-ABBVIE-4200613

PATIENT
  Sex: Female

DRUGS (1)
  1. HUMIRA [Suspect]
     Active Substance: ADALIMUMAB
     Indication: Psoriatic arthropathy
     Dosage: CITRATE FREE?FORM STRENGTH 40MG
     Route: 058

REACTIONS (4)
  - Skin plaque [Recovering/Resolving]
  - Psoriatic arthropathy [Unknown]
  - Nerve compression [Unknown]
  - Arthralgia [Unknown]
